FAERS Safety Report 17747644 (Version 1)
Quarter: 2020Q2

REPORT INFORMATION
  Report Type: Spontaneous
  Country: IT (occurrence: IT)
  Receive Date: 20200505
  Receipt Date: 20200505
  Transmission Date: 20200714
  Serious: Yes (Hospitalization, Other)
  Sender: FDA-Public Use
  Company Number: IT-009507513-2005ITA000480

PATIENT
  Age: 66 Year
  Sex: Male
  Weight: 100 kg

DRUGS (17)
  1. CLOPIDOGREL [Concomitant]
     Active Substance: CLOPIDOGREL BISULFATE
     Dosage: 1 TABLET AT 5:00 PM
  2. RAMIPRIL. [Concomitant]
     Active Substance: RAMIPRIL
     Dosage: 1 TABLET AT 8.00 A.M. AND 1 TABLET AT 8.00 P.M.
  3. EMPAGLIFLOZIN (+) METFORMIN HYDROCHLORIDE [Concomitant]
     Dosage: 12,5/850MG; 1 TABLET AT 12.00 A.M. AND 1 TABLET AT 6.00 P.M.
  4. ENOXAPARIN SODIUM. [Concomitant]
     Active Substance: ENOXAPARIN SODIUM
     Dosage: SYRINGE: 1 DOSE AT 8.00 A.M. AND 1 DOSE AT 8.00 P.M.
  5. DEPALGOS [Concomitant]
     Active Substance: ACETAMINOPHEN\OXYCODONE HYDROCHLORIDE
     Dosage: 5 MILLIGRAM; 1 TABLET IF NEEDED; IF PAIN PERSISTED UP TO 3 DAILY
  6. DULOXETINE HYDROCHLORIDE. [Concomitant]
     Active Substance: DULOXETINE HYDROCHLORIDE
     Dosage: 60 MILLIGRAM, QPM; 1 TABLET AT 8.00 P.M.
  7. AMLODIPINE [Concomitant]
     Active Substance: AMLODIPINE BESYLATE
     Dosage: 1 TABLET AT 12.00 P.M.
  8. KEYTRUDA [Suspect]
     Active Substance: PEMBROLIZUMAB
     Dosage: UNK, EVERY 21 DAYS
     Route: 042
     Dates: start: 20200220, end: 20200220
  9. KEYTRUDA [Suspect]
     Active Substance: PEMBROLIZUMAB
     Dosage: UNK, EVERY 21 DAYS
     Route: 042
     Dates: start: 20200312, end: 20200312
  10. ISONIAZID. [Suspect]
     Active Substance: ISONIAZID
     Indication: ANTIBIOTIC PROPHYLAXIS
     Dosage: 300 MILLIGRAM, QD
     Route: 048
     Dates: start: 20200220
  11. KEYTRUDA [Suspect]
     Active Substance: PEMBROLIZUMAB
     Indication: LUNG SQUAMOUS CELL CARCINOMA METASTATIC
     Dosage: UNK, EVERY 21 DAYS
     Route: 042
     Dates: start: 20200402, end: 20200402
  12. OMEPRAZOLE. [Concomitant]
     Active Substance: OMEPRAZOLE
     Dosage: 1 TABLET AT 8:00 AM
  13. METOPROLOL. [Concomitant]
     Active Substance: METOPROLOL
     Dosage: 1 TABLET AT 8.00 A.M. AND 1 TABLET AT 8.00 P.M.
  14. DELORAZEPAM [Concomitant]
     Active Substance: DELORAZEPAM
     Dosage: 15 DROPS AT 8.00 P.M.
  15. DIGOXIN. [Concomitant]
     Active Substance: DIGOXIN
     Dosage: 0.250 MG, 1 TABLET AT 8:00 AM
  16. XULTOPHY 100/3.6 [Concomitant]
     Active Substance: INSULIN DEGLUDEC\LIRAGLUTIDE
     Dosage: 100U/ML + 3.6 MG/ML 20 IU; SUBCUTANEOUS SYRINGE, 1 DOSE AT 10.00 P.M.
     Route: 058
  17. TARGIN [Concomitant]
     Active Substance: NALOXONE HYDROCHLORIDE\OXYCODONE HYDROCHLORIDE
     Dosage: 20 MILLIGRAM; 1 TABLET AT 8.00 A.M. AND 1 TABLET AT 8.00 P.M.

REACTIONS (4)
  - Drug reaction with eosinophilia and systemic symptoms [Not Recovered/Not Resolved]
  - Acute generalised exanthematous pustulosis [Not Recovered/Not Resolved]
  - Immune-mediated dermatitis [Not Recovered/Not Resolved]
  - Vasculitis [Not Recovered/Not Resolved]

NARRATIVE: CASE EVENT DATE: 202004
